FAERS Safety Report 7652675-1 (Version None)
Quarter: 2011Q3

REPORT INFORMATION
  Report Type: 
  Country: None (occurrence: None)
  Receive Date: 20110803
  Receipt Date: 20110721
  Transmission Date: 20111222
  Serious: Yes (Hospitalization, Other)
  Sender: FDA-Public Use
  Company Number: CA-ELI_LILLY_AND_COMPANY-CA201107005649

PATIENT
  Sex: Female

DRUGS (29)
  1. ZOPICLONE [Concomitant]
  2. SEROQUEL [Concomitant]
  3. PREMARIN [Concomitant]
  4. ZYPREXA [Suspect]
     Indication: BIPOLAR DISORDER
     Dosage: 5 MG, UNKNOWN
  5. ZYPREXA [Suspect]
     Dosage: 2.5 MG, UNKNOWN
  6. TEMAZEPAM [Concomitant]
  7. NORTRIPTYLINE HCL [Concomitant]
  8. OXEPAM [Concomitant]
  9. SYNTHROID [Concomitant]
  10. TRAZODONE HYDROCHLORIDE [Concomitant]
  11. DOXEPIN [Concomitant]
  12. MACROBID [Concomitant]
  13. ZYPREXA [Suspect]
     Dosage: 10 MG, UNKNOWN
  14. PHENAZO [Concomitant]
  15. CIMETIDINE [Concomitant]
  16. LIPITOR [Concomitant]
  17. ELAVIL [Concomitant]
  18. SERTRALINE HYDROCHLORIDE [Concomitant]
  19. ZYPREXA [Suspect]
     Dosage: 15 MG, QD
  20. LORAZEPAM [Concomitant]
  21. LOXAPINE HCL [Concomitant]
  22. NOZINAN [Concomitant]
  23. ALTACE [Concomitant]
  24. ZYPREXA [Suspect]
     Dosage: 7.5 MG, UNKNOWN
  25. LITHIUM CARBONATE [Concomitant]
  26. PAXIL [Concomitant]
  27. DIVALPROEX SODIUM [Concomitant]
  28. RANITIDINE [Concomitant]
  29. METOCLOPRAMIDE HYDROCHLORIDE [Concomitant]

REACTIONS (12)
  - TYPE 2 DIABETES MELLITUS [None]
  - MYOCARDIAL INFARCTION [None]
  - CORONARY ARTERY DISEASE [None]
  - ATONIC URINARY BLADDER [None]
  - RENAL FAILURE [None]
  - URINARY TRACT INFECTION [None]
  - DYSLIPIDAEMIA [None]
  - HYPERGLYCAEMIA [None]
  - HAEMATURIA [None]
  - HYPERTENSION [None]
  - NEUROPATHY PERIPHERAL [None]
  - RETINOPATHY [None]
